FAERS Safety Report 7771033-2 (Version None)
Quarter: 2011Q3

REPORT INFORMATION
  Report Type: 
  Country: None (occurrence: None)
  Receive Date: 20110922
  Receipt Date: 20110201
  Transmission Date: 20111222
  Serious: No
  Sender: FDA-Public Use
  Company Number: US-ASTRAZENECA-2011SE05496

PATIENT
  Age: 39 Year
  Sex: Female
  Weight: 81.6 kg

DRUGS (6)
  1. SEROQUEL [Suspect]
     Route: 048
     Dates: start: 20090101
  2. SEROQUEL [Suspect]
     Indication: ANXIETY
     Dosage: SEROQUEL 600 MG AM, 300 MG  PM AND 300 MG HS
     Route: 048
     Dates: start: 20080101, end: 20090101
  3. NORTRIPTYLINE HCL [Concomitant]
  4. SEROQUEL [Suspect]
     Route: 048
     Dates: start: 20090101
  5. LAMICTAL [Concomitant]
     Indication: ANXIETY
  6. KLONOPIN [Concomitant]

REACTIONS (5)
  - SNORING [None]
  - WEIGHT INCREASED [None]
  - FATIGUE [None]
  - ANXIETY [None]
  - DYSARTHRIA [None]
